FAERS Safety Report 6810366-0 (Version None)
Quarter: 2010Q2

REPORT INFORMATION
  Report Type: 
  Country: None (occurrence: None)
  Receive Date: 20100630
  Receipt Date: 20100616
  Transmission Date: 20101027
  Serious: Yes (Other)
  Sender: FDA-Public Use
  Company Number: PHHY2010BE39797

PATIENT
  Sex: Female

DRUGS (1)
  1. ZOMETA [Suspect]
     Indication: METASTASES TO BONE
     Dosage: 4 MG EVERY 4 WEEKS
     Dates: start: 20090701, end: 20100301

REACTIONS (4)
  - GINGIVAL DISORDER [None]
  - IMPLANT SITE REACTION [None]
  - OSTEOLYSIS [None]
  - OSTEONECROSIS OF JAW [None]
